FAERS Safety Report 9455282 (Version 1)
Quarter: 2013Q3

REPORT INFORMATION
  Report Type: Spontaneous
  Country: US (occurrence: US)
  Receive Date: 20130813
  Receipt Date: 20130813
  Transmission Date: 20140515
  Serious: Yes (Hospitalization)
  Sender: FDA-Public Use
  Company Number: US-BAYER-2013-097033

PATIENT
  Age: 33 Year
  Sex: Female
  Weight: 80.73 kg

DRUGS (5)
  1. YAZ [Suspect]
  2. BEYAZ [Suspect]
  3. LAMISIL [Concomitant]
  4. MULTIVITAMIN [Concomitant]
  5. PHENTERMINE [Concomitant]

REACTIONS (1)
  - Deep vein thrombosis [Recovered/Resolved]
